FAERS Safety Report 18822104 (Version 1)
Quarter: 2021Q1

REPORT INFORMATION
  Report Type: Spontaneous
  Country: US (occurrence: US)
  Receive Date: 20210202
  Receipt Date: 20210202
  Transmission Date: 20210419
  Serious: Yes (Death)
  Sender: FDA-Public Use
  Company Number: NVSC2021US023559

PATIENT
  Age: 5 Year
  Sex: Male
  Weight: 22.23 kg

DRUGS (1)
  1. KYMRIAH [Suspect]
     Active Substance: TISAGENLECLEUCEL
     Indication: ACUTE LYMPHOCYTIC LEUKAEMIA
     Dosage: 41 ML, ONCE/SINGLE (2.8E6)
     Route: 042
     Dates: start: 20210119, end: 20210119

REACTIONS (1)
  - Death [Fatal]

NARRATIVE: CASE EVENT DATE: 20210128
